FAERS Safety Report 9472177 (Version 1)
Quarter: 2013Q3

REPORT INFORMATION
  Report Type: Spontaneous
  Country: US (occurrence: None)
  Receive Date: 20130821
  Receipt Date: 20130821
  Transmission Date: 20140515
  Serious: No
  Sender: FDA-Public Use
  Company Number: None

PATIENT
  Age: 35 Year
  Sex: Female
  Weight: 68.04 kg

DRUGS (2)
  1. LAMOTRIGINE [Suspect]
     Indication: BIPOLAR I DISORDER
     Route: 048
     Dates: start: 201307
  2. LAMOTRIGINE XR [Suspect]
     Dosage: 1QD
     Route: 048

REACTIONS (12)
  - Pruritus [None]
  - Weight increased [None]
  - Myalgia [None]
  - Nausea [None]
  - Vision blurred [None]
  - Coordination abnormal [None]
  - Anxiety [None]
  - Irritability [None]
  - Fatigue [None]
  - Asthenia [None]
  - Muscle spasms [None]
  - Swelling face [None]
